FAERS Safety Report 14352470 (Version 1)
Quarter: 2018Q1

REPORT INFORMATION
  Report Type: Spontaneous
  Country: FR (occurrence: FR)
  Receive Date: 20180104
  Receipt Date: 20180104
  Transmission Date: 20180509
  Serious: Yes (Hospitalization)
  Sender: FDA-Public Use
  Company Number: FR-PFIZER INC-2018004764

PATIENT
  Age: 75 Year
  Sex: Male

DRUGS (2)
  1. AMIODARONE HCL [Suspect]
     Active Substance: AMIODARONE HYDROCHLORIDE
     Indication: TRANSPLANT
     Dosage: 1.5 MG, UNK
     Route: 065
     Dates: start: 201706, end: 201711
  2. CERTICAN [Suspect]
     Active Substance: EVEROLIMUS
     Indication: ATRIAL FIBRILLATION
     Dosage: 200 MG, UNK
     Route: 065
     Dates: start: 20171019, end: 201711

REACTIONS (1)
  - Interstitial lung disease [Recovering/Resolving]

NARRATIVE: CASE EVENT DATE: 201711
